FAERS Safety Report 9401363 (Version 1)
Quarter: 2013Q3

REPORT INFORMATION
  Report Type: Spontaneous
  Country: CN (occurrence: CN)
  Receive Date: 20130715
  Receipt Date: 20130715
  Transmission Date: 20140515
  Serious: Yes (Other)
  Sender: FDA-Public Use
  Company Number: CN-BAXTER-2013BAX026399

PATIENT
  Age: 59 Year
  Sex: Male
  Weight: 69 kg

DRUGS (12)
  1. 0.9% SODIUM CHLORIDE INJECTION [Suspect]
     Indication: VERTEBROBASILAR INSUFFICIENCY
     Route: 041
     Dates: start: 20120815, end: 20120816
  2. 0.9% SODIUM CHLORIDE INJECTION [Suspect]
     Route: 041
     Dates: start: 20120815, end: 20120816
  3. MEGLUMINE [Suspect]
     Indication: VERTEBROBASILAR INSUFFICIENCY
     Route: 041
     Dates: start: 20120815, end: 20120816
  4. ADENOSINE CYCLOPHOSPHATE [Suspect]
     Indication: VERTEBROBASILAR INSUFFICIENCY
     Route: 041
     Dates: start: 20120815, end: 20120816
  5. COMPLEX POTASSIUM HYDROGEN PHOSPHATE [Suspect]
     Indication: VERTEBROBASILAR INSUFFICIENCY
     Route: 041
     Dates: start: 20120815, end: 20120816
  6. LIGUSTRAZINE [Suspect]
     Indication: VERTEBROBASILAR INSUFFICIENCY
     Route: 041
     Dates: start: 20120815, end: 20120816
  7. OXIRACETAM [Suspect]
     Indication: VERTEBROBASILAR INSUFFICIENCY
     Route: 041
     Dates: start: 20120815, end: 20120816
  8. METHYLCOBALAMIN [Suspect]
     Indication: VERTEBROBASILAR INSUFFICIENCY
     Route: 041
     Dates: start: 20120815, end: 20120816
  9. VITAMIN B1 [Suspect]
     Indication: VERTEBROBASILAR INSUFFICIENCY
     Route: 030
     Dates: start: 20120815, end: 20120816
  10. BESYLATE AMLODIPINE [Suspect]
     Indication: VERTEBROBASILAR INSUFFICIENCY
     Route: 048
     Dates: start: 20120815, end: 20120816
  11. ASPIRIN ENTERIC COATED [Suspect]
     Indication: VERTEBROBASILAR INSUFFICIENCY
     Route: 048
     Dates: start: 20120815, end: 20120816
  12. ROSUVASTATIN [Suspect]
     Indication: PRODUCT USED FOR UNKNOWN INDICATION
     Route: 048
     Dates: start: 20120815, end: 20120816

REACTIONS (9)
  - Hypotension [Recovered/Resolved]
  - Hypoaesthesia [Recovered/Resolved]
  - Pruritus [Recovered/Resolved]
  - Hyperhidrosis [Recovered/Resolved]
  - Pallor [Recovered/Resolved]
  - Nausea [Recovered/Resolved]
  - Vomiting [Recovered/Resolved]
  - Chest discomfort [Recovered/Resolved]
  - Depressed mood [Recovered/Resolved]
